FAERS Safety Report 6687656-8 (Version None)
Quarter: 2010Q2

REPORT INFORMATION
  Report Type: 
  Country: None (occurrence: None)
  Receive Date: 20100415
  Receipt Date: 20100330
  Transmission Date: 20101027
  Serious: Yes (Other)
  Sender: FDA-Public Use
  Company Number: VAL_00401_2010

PATIENT
  Sex: Male

DRUGS (3)
  1. CALCITRIOL [Suspect]
     Indication: RICKETS
     Dosage: 1.4 UG/M2/DAY THEN CHANGED TO 1-1.5 UG/M2/DAY ORAL
     Route: 048
  2. CALCIUM GLUCONATE [Concomitant]
  3. CALCIUM CARBONATE [Concomitant]

REACTIONS (7)
  - ALOPECIA TOTALIS [None]
  - CONDITION AGGRAVATED [None]
  - DRUG INEFFECTIVE [None]
  - KNEE DEFORMITY [None]
  - RIB DEFORMITY [None]
  - RICKETS [None]
  - TOOTH HYPOPLASIA [None]
